FAERS Safety Report 6505053-2 (Version None)
Quarter: 2009Q4

REPORT INFORMATION
  Report Type: 
  Country: None (occurrence: None)
  Receive Date: 20091218
  Receipt Date: 20091207
  Transmission Date: 20100525
  Serious: No
  Sender: FDA-Public Use
  Company Number: US-JNJFOC-20091202929

PATIENT
  Sex: Male
  Weight: 83.01 kg

DRUGS (3)
  1. DURAGESIC-100 [Suspect]
     Indication: BACK PAIN
     Dosage: NDC#: 50458-094-05
     Route: 062
  2. DURAGESIC-100 [Suspect]
     Route: 062
  3. MORPHINE [Concomitant]
     Indication: BACK PAIN
     Route: 062

REACTIONS (6)
  - DRUG ADMINISTRATION ERROR [None]
  - MALAISE [None]
  - THERAPEUTIC RESPONSE DECREASED [None]
  - TREMOR [None]
  - VEIN PAIN [None]
  - VOMITING [None]
